FAERS Safety Report 16371335 (Version 1)
Quarter: 2019Q3

REPORT INFORMATION
  Report Type: Spontaneous
  Country: US (occurrence: US)
  Receive Date: 20190529
  Receipt Date: 20190529
  Transmission Date: 20191004
  Serious: Yes (Life-Threatening)
  Sender: FDA-Public Use
  Company Number: None

PATIENT
  Age: 45 Year
  Sex: Female
  Weight: 87.3 kg

DRUGS (12)
  1. OMEPRIZOLE [Concomitant]
  2. AZITHROMYCIN TABLETS, USP [Suspect]
     Active Substance: AZITHROMYCIN
     Indication: PNEUMONIA
     Dosage: ?          QUANTITY:6 TABLET(S);?
     Route: 048
     Dates: start: 20190525, end: 20190527
  3. OXYCODONE [Concomitant]
     Active Substance: OXYCODONE
  4. HYDROXYZINE [Concomitant]
     Active Substance: HYDROXYZINE HYDROCHLORIDE
  5. CLONAZEPAM. [Concomitant]
     Active Substance: CLONAZEPAM
  6. ASPIRIN. [Concomitant]
     Active Substance: ASPIRIN
  7. SPIRIVA, DALIRESP, ALBUTEROL RESCUE INHALER, GAPAPENTIN, CELEXA, HYDROXYZINE, CLONAZEPAM, OMEPRIZOLE, [Concomitant]
  8. SPIRIVA [Concomitant]
     Active Substance: TIOTROPIUM BROMIDE MONOHYDRATE
  9. GAPAPENTINE ARROW [Concomitant]
     Active Substance: GABAPENTIN
  10. DALIRESP [Concomitant]
     Active Substance: ROFLUMILAST
  11. CELEXA [Concomitant]
     Active Substance: CITALOPRAM HYDROBROMIDE
  12. ALBUTEROL RESCUE INHALER [Concomitant]

REACTIONS (3)
  - Arrhythmia [None]
  - Heart rate increased [None]
  - Chest pain [None]

NARRATIVE: CASE EVENT DATE: 20190528
